FAERS Safety Report 16933359 (Version 1)
Quarter: 2019Q4

REPORT INFORMATION
  Report Type: Report from Study
  Country: US (occurrence: US)
  Receive Date: 20191018
  Receipt Date: 20191018
  Transmission Date: 20200122
  Serious: Yes (Hospitalization, Other)
  Sender: FDA-Public Use
  Company Number: US-B.I. PHARMACEUTICALS,INC./RIDGEFIELD-2018-BI-050536

PATIENT
  Age: 61 Year
  Sex: Female

DRUGS (2)
  1. OFEV [Suspect]
     Active Substance: NINTEDANIB
     Indication: IDIOPATHIC PULMONARY FIBROSIS
     Dosage: TAKE 1 CAPSULE BY MOUTH EVERY 12 HOURS WITH FOOD
     Route: 048
     Dates: start: 20180815
  2. OMEPRAZOLE. [Suspect]
     Active Substance: OMEPRAZOLE
     Indication: GASTROOESOPHAGEAL REFLUX DISEASE
     Route: 065

REACTIONS (44)
  - Nausea [Recovered/Resolved]
  - Decreased appetite [Not Recovered/Not Resolved]
  - Peripheral swelling [Unknown]
  - Weight decreased [Not Recovered/Not Resolved]
  - Feeling abnormal [Not Recovered/Not Resolved]
  - Taste disorder [Not Recovered/Not Resolved]
  - Arthritis [Unknown]
  - Systemic lupus erythematosus [Not Recovered/Not Resolved]
  - Decreased appetite [Not Recovered/Not Resolved]
  - Dyspnoea [Not Recovered/Not Resolved]
  - Eating disorder [Not Recovered/Not Resolved]
  - Ascites [Unknown]
  - Abdominal pain upper [Recovered/Resolved]
  - Nephropathy toxic [Unknown]
  - Fatigue [Recovered/Resolved]
  - Diarrhoea [Not Recovered/Not Resolved]
  - Dizziness [Recovered/Resolved]
  - Faeces soft [Unknown]
  - Pain in jaw [Not Recovered/Not Resolved]
  - Gingival pain [Not Recovered/Not Resolved]
  - Nasopharyngitis [Recovered/Resolved]
  - Nausea [Not Recovered/Not Resolved]
  - Swelling [Unknown]
  - Nasopharyngitis [Not Recovered/Not Resolved]
  - Early satiety [Not Recovered/Not Resolved]
  - Arthralgia [Recovered/Resolved]
  - Dysphonia [Not Recovered/Not Resolved]
  - Abdominal distension [Not Recovered/Not Resolved]
  - Gastrointestinal sounds abnormal [Not Recovered/Not Resolved]
  - Respiratory disorder [Unknown]
  - Malaise [Unknown]
  - Cough [Unknown]
  - Faeces hard [Recovered/Resolved]
  - Abdominal pain upper [Unknown]
  - Dyspnoea [Recovered/Resolved]
  - Fatigue [Unknown]
  - Weight increased [Unknown]
  - Gastrooesophageal reflux disease [Not Recovered/Not Resolved]
  - Cough [Recovered/Resolved]
  - Renal disorder [Not Recovered/Not Resolved]
  - Diarrhoea [Not Recovered/Not Resolved]
  - Nervousness [Recovered/Resolved]
  - Abdominal distension [Recovered/Resolved]
  - Abdominal discomfort [Not Recovered/Not Resolved]

NARRATIVE: CASE EVENT DATE: 20181022
